FAERS Safety Report 10047847 (Version 2)
Quarter: 2014Q2

REPORT INFORMATION
  Report Type: Spontaneous
  Country: MQ (occurrence: None)
  Receive Date: 20140311
  Receipt Date: 20140407
  Transmission Date: 20141212
  Serious: Yes (Hospitalization, Other)
  Sender: FDA-Public Use
  Company Number: MQ-014883

PATIENT
  Age: 60 Year
  Sex: Male
  Weight: 63 kg

DRUGS (3)
  1. FIRMAGON [Suspect]
     Indication: PROSTATE CANCER METASTATIC
     Route: 058
     Dates: start: 201310, end: 201310
  2. OXYCONTIN [Concomitant]
  3. PARACETAMOL [Concomitant]

REACTIONS (2)
  - Blindness unilateral [None]
  - Vision blurred [None]
